FAERS Safety Report 7792411-1 (Version None)
Quarter: 2011Q4

REPORT INFORMATION
  Report Type: 
  Country: None (occurrence: None)
  Receive Date: 20111003
  Receipt Date: 20110919
  Transmission Date: 20120403
  Serious: Yes (Other)
  Sender: FDA-Public Use
  Company Number: US-JNJFOC-20110908519

PATIENT
  Sex: Male

DRUGS (3)
  1. BENADRYL [Suspect]
     Indication: HYPERSENSITIVITY
     Dosage: ^A BUNCH^
     Route: 048
  2. BENADRYL [Suspect]
     Route: 048
  3. BEANO [Suspect]
     Indication: PRODUCT USED FOR UNKNOWN INDICATION
     Route: 065
     Dates: start: 20110909

REACTIONS (2)
  - OFF LABEL USE [None]
  - LOSS OF CONSCIOUSNESS [None]
